FAERS Safety Report 16377482 (Version 4)
Quarter: 2019Q4

REPORT INFORMATION
  Report Type: Spontaneous
  Country: US (occurrence: US)
  Receive Date: 20190531
  Receipt Date: 20191014
  Transmission Date: 20200122
  Serious: No
  Sender: FDA-Public Use
  Company Number: US-PFIZER INC-2019212522

PATIENT
  Age: 84 Year
  Sex: Female
  Weight: 63.49 kg

DRUGS (2)
  1. LORBRENA [Suspect]
     Active Substance: LORLATINIB
     Indication: LUNG CANCER METASTATIC
     Dosage: 100 MG, DAILY (100MG TABLETS BY MOUTH ONCE DAILY)
     Route: 048
     Dates: start: 20190510
  2. LORBRENA [Suspect]
     Active Substance: LORLATINIB
     Dosage: 100 MG, DAILY (ONE TABLET EACH DAY)
     Route: 048

REACTIONS (5)
  - Limb discomfort [Unknown]
  - Product quality issue [Unknown]
  - Gait disturbance [Unknown]
  - Poor quality product administered [Unknown]
  - Pain in extremity [Not Recovered/Not Resolved]

NARRATIVE: CASE EVENT DATE: 20190520
